FAERS Safety Report 4620406-5 (Version None)
Quarter: 2005Q1

REPORT INFORMATION
  Report Type: 
  Country: None (occurrence: None)
  Receive Date: 20050328
  Receipt Date: 20050316
  Transmission Date: 20050727
  Serious: Yes (Death)
  Sender: FDA-Public Use
  Company Number: MY-MERCK-0503MYS00022

PATIENT
  Age: 33 Year
  Sex: Male

DRUGS (1)
  1. INVANZ [Suspect]
     Indication: SKIN INFECTION
     Route: 042
     Dates: end: 20050201

REACTIONS (2)
  - DEATH [None]
  - PNEUMONITIS [None]
